FAERS Safety Report 24743830 (Version 1)
Quarter: 2024Q4

REPORT INFORMATION
  Report Type: Spontaneous
  Country: ES (occurrence: ES)
  Receive Date: 20241217
  Receipt Date: 20241217
  Transmission Date: 20250115
  Serious: Yes (Hospitalization, Other)
  Sender: ANI
  Company Number: ES-ANIPHARMA-2024-ES-000125

PATIENT
  Age: 84 Year
  Sex: Female
  Weight: 65 kg

DRUGS (11)
  1. CANDESARTAN CILEXETIL [Suspect]
     Active Substance: CANDESARTAN CILEXETIL
     Indication: Hypertension
     Dosage: 32 MILLIGRAM, QD
     Route: 048
     Dates: start: 20230131, end: 20241001
  2. VITAMIN D3 [Concomitant]
     Active Substance: CHOLECALCIFEROL
     Dates: start: 20200609
  3. PARACETAMOL KERN [Concomitant]
     Dates: start: 20200811
  4. ADALAT [Concomitant]
     Active Substance: NIFEDIPINE
     Dates: start: 20240923
  5. PREDNISONE [Concomitant]
     Active Substance: PREDNISONE
     Dates: start: 20240923, end: 20241005
  6. TORSEMIDE [Concomitant]
     Active Substance: TORSEMIDE
     Dates: start: 20240905
  7. DOXAZOSIN MESYLATE [Concomitant]
     Active Substance: DOXAZOSIN MESYLATE
     Dates: start: 20210312
  8. HYDRALAZINE HYDROCHLORIDE [Concomitant]
     Active Substance: HYDRALAZINE HYDROCHLORIDE
     Dates: start: 20210312
  9. ALPRAZOLAM [Concomitant]
     Active Substance: ALPRAZOLAM
     Dates: start: 20231115
  10. PANTOPRAZOL KERN PHARMA [Concomitant]
     Dates: start: 20150824
  11. ATORVASTATINA KERN PHARMA [Concomitant]
     Dates: start: 20180131

REACTIONS (6)
  - Acute kidney injury [Recovered/Resolved]
  - Cardiac failure [Recovered/Resolved]
  - Iron deficiency anaemia [Not Recovered/Not Resolved]
  - Chronic gastritis [Unknown]
  - Intestinal metaplasia [Unknown]
  - Large intestine polyp [Unknown]

NARRATIVE: CASE EVENT DATE: 20240806
